FAERS Safety Report 5551556-7 (Version None)
Quarter: 2007Q4

REPORT INFORMATION
  Report Type: 
  Country: None (occurrence: None)
  Receive Date: 20071212
  Receipt Date: 20071130
  Transmission Date: 20080405
  Serious: Yes (Other)
  Sender: FDA-Public Use
  Company Number: FR-PFIZER INC-2007101886

PATIENT
  Age: 26 Year
  Sex: Female

DRUGS (1)
  1. CYTOTEC [Suspect]
     Indication: BLIGHTED OVUM
     Route: 048

REACTIONS (2)
  - ABORTION [None]
  - DRUG INEFFECTIVE FOR UNAPPROVED INDICATION [None]
